FAERS Safety Report 16577347 (Version 2)
Quarter: 2019Q3

REPORT INFORMATION
  Report Type: Spontaneous
  Country: AU (occurrence: AU)
  Receive Date: 20190716
  Receipt Date: 20190813
  Transmission Date: 20191004
  Serious: Yes (Other)
  Sender: FDA-Public Use
  Company Number: AU-ASTELLAS-2019US028247

PATIENT
  Age: 10 Year
  Sex: Male

DRUGS (2)
  1. VESICARE [Suspect]
     Active Substance: SOLIFENACIN SUCCINATE
     Indication: HYPERTONIC BLADDER
     Dosage: 5 MG, ONCE DAILY (1/2 10 MG TABLET)
     Route: 065
     Dates: start: 20190206, end: 20190706
  2. BETNOVATE [Concomitant]
     Active Substance: BETAMETHASONE
     Indication: PRODUCT USED FOR UNKNOWN INDICATION
     Dosage: UNK UNK, UNKNOWN FREQ.(HALF STRENGTH APPLIED ON PENIS)
     Route: 061

REACTIONS (8)
  - Arthralgia [Recovered/Resolved]
  - Sialoadenitis [Unknown]
  - Salivary gland calculus [Unknown]
  - Neutropenia [Unknown]
  - Arthralgia [Recovering/Resolving]
  - Salivary gland pain [Recovering/Resolving]
  - Wrong technique in product usage process [Unknown]
  - Salivary gland enlargement [Recovering/Resolving]

NARRATIVE: CASE EVENT DATE: 20190206
